FAERS Safety Report 10408988 (Version 1)
Quarter: 2014Q1

REPORT INFORMATION
  Report Type: Spontaneous
  Country: US (occurrence: None)
  Receive Date: 20130909
  Receipt Date: 20130909
  Transmission Date: 20141002
  Serious: Yes (Hospitalization)
  Sender: FDA-Public Use
  Company Number: 372154N

PATIENT
  Age: 62 Year
  Sex: Male
  Weight: 125.19 kg

DRUGS (8)
  1. VICTOZA (LIRAGLUTIDE) SOLUTION FOR INJECTION, 6MG/ML [Suspect]
     Indication: TYPE 2 DIABETES MELLITUS
     Route: 058
     Dates: start: 20120926, end: 20130220
  2. ACE INHIBITORS [Concomitant]
  3. LANTUS (INSULIN GLARGINE) [Concomitant]
  4. METFORMIN [Concomitant]
  5. CARVEDILOL [Concomitant]
  6. AMLODIPINE [Concomitant]
  7. ASPIRIN (ACETYLSALICYLIC ACID) [Concomitant]
  8. ANGIOTENSIN II ANTAGONISTS, PLAIN [Concomitant]

REACTIONS (1)
  - Angioedema [None]
